FAERS Safety Report 8221081-3 (Version None)
Quarter: 2012Q1

REPORT INFORMATION
  Report Type: 
  Country: None (occurrence: None)
  Receive Date: 20120316
  Receipt Date: 20120301
  Transmission Date: 20120608
  Serious: Yes (Hospitalization)
  Sender: FDA-Public Use
  Company Number: 2012SGN00091

PATIENT
  Age: 73 Year
  Sex: Male
  Weight: 113.8 kg

DRUGS (15)
  1. PREDNISONE TAB [Suspect]
     Indication: ANAPLASTIC LARGE CELL LYMPHOMA T- AND NULL-CELL TYPES
     Dosage: 100 MG, Q21D, ORAL
     Route: 048
     Dates: start: 20120126, end: 20120220
  2. DOXORUBICIN HCL [Suspect]
     Indication: ANAPLASTIC LARGE CELL LYMPHOMA T- AND NULL-CELL TYPES
     Dosage: 50 MG/M2, Q21D, INTRAVENOUS
     Route: 042
     Dates: start: 20120126, end: 20120216
  3. JANTOVEN [Concomitant]
  4. LASIX [Concomitant]
  5. GLUCOSAMINE (GLUCOSAMINE SULFATE) [Concomitant]
  6. SIMVASTATIN [Concomitant]
  7. LOSARTAN POTASSIUM [Concomitant]
  8. DOXAZOSIN (DOXAZOSIN MESILATE) [Concomitant]
  9. CYCLOPHOSPHAMIDE [Suspect]
     Indication: ANAPLASTIC LARGE CELL LYMPHOMA T- AND NULL-CELL TYPES
     Dosage: 750 MG/M2, Q21D, INTRAVENOUS
     Route: 042
     Dates: start: 20120126, end: 20120216
  10. VITAMIN B12 (HYDROXOCOBALAMIN) [Concomitant]
  11. MULTIVITAMIN [Concomitant]
  12. BRENTUXIMAB VEDOTIN (BRENTUXIMAB VEDOTIN) INJECTION [Suspect]
     Indication: ANAPLASTIC LARGE CELL LYMPHOMA T- AND NULL-CELL TYPES
     Dosage: 1.8 MG/M2, Q21D, INTRAVENOUS
     Route: 042
     Dates: start: 20120126, end: 20120216
  13. FISH OIL (FISH OIL) [Concomitant]
  14. PROPRANOLOL (PROPRANOLOL HYDROCHLORIDE) [Concomitant]
  15. NIACIN [Concomitant]

REACTIONS (1)
  - FEBRILE NEUTROPENIA [None]
